FAERS Safety Report 21997023 (Version 2)
Quarter: 2023Q1

REPORT INFORMATION
  Report Type: Report from Study
  Country: AU (occurrence: AU)
  Receive Date: 20230215
  Receipt Date: 20230222
  Transmission Date: 20230418
  Serious: Yes (Hospitalization, Other)
  Sender: FDA-Public Use
  Company Number: AU-BEH-2023155210

PATIENT
  Age: 25 Year
  Sex: Female
  Weight: 52 kg

DRUGS (9)
  1. HIZENTRA [Suspect]
     Active Substance: HUMAN IMMUNOGLOBULIN G
     Indication: Secondary immunodeficiency
     Dosage: 4 GRAM, QW
     Route: 058
     Dates: start: 20221012, end: 20221012
  2. MELATONIN [Concomitant]
     Active Substance: MELATONIN
  3. LYRICA [Concomitant]
     Active Substance: PREGABALIN
  4. LERCANIDIPINE [Concomitant]
     Active Substance: LERCANIDIPINE
  5. TOPAMAX [Concomitant]
     Active Substance: TOPIRAMATE
  6. CELEBREX [Concomitant]
     Active Substance: CELECOXIB
  7. MAGNESIUM [Concomitant]
     Active Substance: MAGNESIUM
  8. VITAMIN D NOS [Concomitant]
     Active Substance: VITAMIN D NOS
  9. RIBOFLAVIN [Concomitant]
     Active Substance: RIBOFLAVIN

REACTIONS (2)
  - Injection site infection [Recovering/Resolving]
  - Blindness transient [Recovering/Resolving]
